FAERS Safety Report 14685963 (Version 1)
Quarter: 2018Q1

REPORT INFORMATION
  Report Type: Spontaneous
  Country: IN (occurrence: IN)
  Receive Date: 20180327
  Receipt Date: 20180327
  Transmission Date: 20180509
  Serious: Yes (Death, Hospitalization, Other)
  Sender: FDA-Public Use
  Company Number: IN-GILEAD-2018-0328918

PATIENT
  Age: 62 Year
  Sex: Male

DRUGS (1)
  1. HARVONI [Suspect]
     Active Substance: LEDIPASVIR\SOFOSBUVIR
     Indication: HEPATITIS C VIRUS TEST POSITIVE
     Dosage: 1 DF, QD
     Route: 065

REACTIONS (1)
  - Liver carcinoma ruptured [Fatal]
